FAERS Safety Report 7480768-0 (Version None)
Quarter: 2011Q2

REPORT INFORMATION
  Report Type: 
  Country: None (occurrence: None)
  Receive Date: 20110512
  Receipt Date: 20110512
  Transmission Date: 20111010
  Serious: Yes (Life-Threatening, Hospitalization)
  Sender: FDA-Public Use
  Company Number: None

PATIENT
  Age: 61 Year
  Sex: Male
  Weight: 72.5755 kg

DRUGS (1)
  1. PRILOSEC [Suspect]
     Dosage: 20 MG DAILY PO AT LEAST
     Route: 048
     Dates: start: 20071022, end: 20110404

REACTIONS (9)
  - BUNDLE BRANCH BLOCK RIGHT [None]
  - NAUSEA [None]
  - ELECTROCARDIOGRAM ST SEGMENT ABNORMAL [None]
  - ABDOMINAL PAIN UPPER [None]
  - ASTHENIA [None]
  - ELECTROCARDIOGRAM QT PROLONGED [None]
  - TACHYCARDIA [None]
  - DEPRESSION [None]
  - IRRITABILITY [None]
